FAERS Safety Report 6636436-8 (Version None)
Quarter: 2010Q1

REPORT INFORMATION
  Report Type: 
  Country: None (occurrence: None)
  Receive Date: 20100311
  Receipt Date: 20100301
  Transmission Date: 20100710
  Serious: Yes (Other)
  Sender: FDA-Public Use
  Company Number: 524938

PATIENT
  Age: 15 Year
  Sex: Female

DRUGS (9)
  1. ETOPOSIDE [Suspect]
     Indication: PRIMITIVE NEUROECTODERMAL TUMOUR
  2. METHOTREXATE [Suspect]
     Indication: PRIMITIVE NEUROECTODERMAL TUMOUR
  3. VINCRISTINE SULFATE [Suspect]
     Indication: PRIMITIVE NEUROECTODERMAL TUMOUR
  4. CISPLATIN [Suspect]
     Indication: PRIMITIVE NEUROECTODERMAL TUMOUR
  5. HYDROXYUREA [Suspect]
     Indication: PRIMITIVE NEUROECTODERMAL TUMOUR
  6. PREDNISONE TAB [Suspect]
     Indication: PRIMITIVE NEUROECTODERMAL TUMOUR
  7. (LOMUSTINE) [Suspect]
     Indication: PRIMITIVE NEUROECTODERMAL TUMOUR
  8. (NITROGEN MUSTARD) [Suspect]
     Indication: PRIMITIVE NEUROECTODERMAL TUMOUR
  9. (PROCARBAZINE) [Suspect]
     Indication: PRIMITIVE NEUROECTODERMAL TUMOUR

REACTIONS (2)
  - MULTI-ORGAN FAILURE [None]
  - MYELOID LEUKAEMIA [None]
